FAERS Safety Report 15667354 (Version 1)
Quarter: 2018Q4

REPORT INFORMATION
  Report Type: Spontaneous
  Country: US (occurrence: US)
  Receive Date: 20181128
  Receipt Date: 20181128
  Transmission Date: 20190205
  Serious: Yes (Hospitalization)
  Sender: FDA-Public Use
  Company Number: US-MYLANLABS-2018M1087990

PATIENT
  Age: 43 Year
  Sex: Female

DRUGS (3)
  1. KETOROLAC [Suspect]
     Active Substance: KETOROLAC\KETOROLAC TROMETHAMINE
     Indication: NECK PAIN
     Route: 042
  2. OMNIPAQUE [Concomitant]
     Active Substance: IOHEXOL
     Indication: EPIDURAL INJECTION
     Route: 008
  3. LIDOCAINE. [Concomitant]
     Active Substance: LIDOCAINE
     Route: 008

REACTIONS (6)
  - Muscular weakness [Recovered/Resolved]
  - Hypoaesthesia [Recovered/Resolved]
  - Spinal column stenosis [Recovering/Resolving]
  - Spinal epidural haematoma [Recovered/Resolved]
  - Urinary retention [Recovered/Resolved]
  - Condition aggravated [Recovered/Resolved]
